FAERS Safety Report 5723049-5 (Version None)
Quarter: 2008Q2

REPORT INFORMATION
  Report Type: 
  Country: None (occurrence: None)
  Receive Date: 20080428
  Receipt Date: 20080428
  Transmission Date: 20081010
  Serious: Yes (Hospitalization)
  Sender: FDA-Public Use
  Company Number: None

PATIENT
  Sex: Male
  Weight: 77 kg

DRUGS (1)
  1. TEMOZOLOMIDE [Suspect]
     Dosage: 200 MG

REACTIONS (10)
  - DRUG PRESCRIBING ERROR [None]
  - ELECTROCARDIOGRAM QRS COMPLEX [None]
  - GASTROENTERITIS VIRAL [None]
  - HEADACHE [None]
  - INCORRECT DOSE ADMINISTERED [None]
  - NAUSEA [None]
  - OVERDOSE [None]
  - PALPITATIONS [None]
  - TREATMENT NONCOMPLIANCE [None]
  - VOMITING [None]
